FAERS Safety Report 8308124-3 (Version None)
Quarter: 2012Q2

REPORT INFORMATION
  Report Type: 
  Country: None (occurrence: None)
  Receive Date: 20120424
  Receipt Date: 20120406
  Transmission Date: 20120825
  Serious: Yes (Death, Other)
  Sender: FDA-Public Use
  Company Number: JP-ROCHE-1049168

PATIENT
  Sex: Male
  Weight: 50 kg

DRUGS (9)
  1. ACTEMRA [Suspect]
     Indication: RHEUMATOID ARTHRITIS
     Route: 041
     Dates: start: 20111025, end: 20120216
  2. FOLIAMIN [Concomitant]
     Indication: PROPHYLAXIS
     Route: 048
  3. RHEUMATREX [Suspect]
     Route: 048
     Dates: start: 20110711
  4. ASPIRIN [Concomitant]
     Route: 048
  5. RABEPRAZOLE SODIUM [Concomitant]
     Indication: GASTROOESOPHAGEAL REFLUX DISEASE
     Route: 048
  6. PREDNISOLONE [Concomitant]
     Indication: RHEUMATOID ARTHRITIS
     Route: 048
  7. VOLTAREN-XR [Concomitant]
     Dosage: AT THE RIGHT TIME
     Route: 048
  8. RHEUMATREX [Suspect]
     Indication: RHEUMATOID ARTHRITIS
     Route: 048
     Dates: start: 20100108, end: 20110705
  9. ADALAT CC [Concomitant]
     Route: 048

REACTIONS (7)
  - PNEUMONIA CYTOMEGALOVIRAL [None]
  - PNEUMOCYSTIS JIROVECI PNEUMONIA [None]
  - INTERSTITIAL LUNG DISEASE [None]
  - DISSEMINATED INTRAVASCULAR COAGULATION [None]
  - SEPTIC SHOCK [None]
  - BONE MARROW FAILURE [None]
  - PNEUMONIA [None]
